FAERS Safety Report 23848593 (Version 1)
Quarter: 2024Q2

REPORT INFORMATION
  Report Type: Spontaneous
  Country: US (occurrence: None)
  Receive Date: 20240511
  Receipt Date: 20240511
  Transmission Date: 20240715
  Serious: Yes (Life-Threatening, Hospitalization)
  Sender: FDA-Public Use
  Company Number: None

PATIENT
  Age: 57 Year
  Sex: Female
  Weight: 90 kg

DRUGS (1)
  1. HYDROCHLOROTHIAZIDE\LISINOPRIL [Suspect]
     Active Substance: HYDROCHLOROTHIAZIDE\LISINOPRIL
     Indication: Hypertension
     Dosage: OTHER QUANTITY : 2 TAB;?FREQUENCY : DAILY;?
     Route: 048
     Dates: start: 20190806, end: 20210726

REACTIONS (1)
  - Angioedema [None]

NARRATIVE: CASE EVENT DATE: 20210726
